FAERS Safety Report 10146287 (Version 3)
Quarter: 2014Q2

REPORT INFORMATION
  Report Type: Spontaneous
  Country: US (occurrence: US)
  Receive Date: 20140501
  Receipt Date: 20140618
  Transmission Date: 20141212
  Serious: Yes (Other)
  Sender: FDA-Public Use
  Company Number: US-SA-2014SA053931

PATIENT
  Age: 84 Year
  Sex: Female
  Weight: 86.6 kg

DRUGS (14)
  1. LANTUS [Suspect]
     Indication: DIABETES MELLITUS
     Dosage: DOSE:10 UNIT(S)
     Route: 065
     Dates: start: 2012
  2. COREG [Concomitant]
     Indication: HYPERTENSION
  3. SIMVASTATIN [Concomitant]
     Indication: BLOOD CHOLESTEROL INCREASED
  4. KLOR-CON [Concomitant]
     Indication: BLOOD POTASSIUM DECREASED
  5. ZOFRAN [Concomitant]
     Indication: NAUSEA
     Dosage: 8 MG EVERY 6 HOURS, PRN
  6. LETROZOLE [Concomitant]
     Indication: NEOPLASM MALIGNANT
  7. GLIPIZIDE [Concomitant]
     Indication: DIABETES MELLITUS
  8. PROTONIX [Concomitant]
     Indication: GASTROOESOPHAGEAL REFLUX DISEASE
  9. ASPIRIN [Concomitant]
     Indication: CARDIAC DISORDER
  10. MAGNE B6 [Concomitant]
     Indication: BONE DISORDER
  11. LASIX [Concomitant]
     Indication: HYPERTENSION
  12. GLUCOPHAGE [Concomitant]
     Indication: DIABETES MELLITUS
  13. XANAX [Concomitant]
     Indication: ANXIETY
  14. CALCIUM/VITAMIN D [Concomitant]
     Indication: BONE DISORDER

REACTIONS (2)
  - Cardiac disorder [Unknown]
  - Neoplasm malignant [Unknown]
